FAERS Safety Report 24597541 (Version 2)
Quarter: 2024Q4

REPORT INFORMATION
  Report Type: Spontaneous
  Country: US (occurrence: US)
  Receive Date: 20241110
  Receipt Date: 20241224
  Transmission Date: 20250114
  Serious: No
  Sender: SANOFI AVENTIS
  Company Number: US-SA-2024SA309251

PATIENT
  Age: 49 Year
  Sex: Female
  Weight: 113.39 kg

DRUGS (1)
  1. DUPIXENT [Suspect]
     Active Substance: DUPILUMAB
     Indication: Eosinophilic oesophagitis
     Dosage: 300 MG, QW
     Route: 058

REACTIONS (4)
  - Dysphagia [Not Recovered/Not Resolved]
  - Choking sensation [Not Recovered/Not Resolved]
  - Injection site urticaria [Recovered/Resolved]
  - Injection site pruritus [Recovered/Resolved]

NARRATIVE: CASE EVENT DATE: 20240901
